FAERS Safety Report 20711605 (Version 1)
Quarter: 2022Q2

REPORT INFORMATION
  Report Type: Spontaneous
  Country: GB (occurrence: GB)
  Receive Date: 20220414
  Receipt Date: 20220414
  Transmission Date: 20220721
  Serious: No
  Sender: FDA-Public Use
  Company Number: GB-LUPIN PHARMACEUTICALS INC.-2022-05637

PATIENT
  Age: 26 Year
  Sex: Female

DRUGS (5)
  1. METRONIDAZOLE [Suspect]
     Active Substance: METRONIDAZOLE
     Indication: Antibiotic therapy
     Dosage: 500 MG, TID
     Route: 042
  2. CEFUROXIME [Suspect]
     Active Substance: CEFUROXIME
     Indication: Antibiotic therapy
     Dosage: 1.5 GRAM, TID
     Route: 042
  3. AMOXICILLIN\CLAVULANIC ACID [Suspect]
     Active Substance: AMOXICILLIN\CLAVULANIC ACID
     Indication: Antibiotic therapy
     Dosage: 625 MG, TID
     Route: 048
  4. WARFARIN [Suspect]
     Active Substance: WARFARIN
     Indication: Ovarian vein thrombosis
     Dosage: UNK (DOSED AS PER INR)
     Route: 048
  5. WARFARIN [Suspect]
     Active Substance: WARFARIN
     Indication: Postpartum thrombosis

REACTIONS (1)
  - Maternal exposure during breast feeding [Unknown]
